FAERS Safety Report 11637253 (Version 1)
Quarter: 2015Q4

REPORT INFORMATION
  Report Type: Spontaneous
  Country: US (occurrence: US)
  Receive Date: 20151016
  Receipt Date: 20151016
  Transmission Date: 20160304
  Serious: No
  Sender: FDA-Public Use
  Company Number: US-TORRENT-00000984

PATIENT
  Sex: Male

DRUGS (1)
  1. ESCITALOPRAM OXALATE- ESCITALOPRAM OXALATE TABLET [Suspect]
     Active Substance: ESCITALOPRAM OXALATE
     Indication: PRODUCT USED FOR UNKNOWN INDICATION
     Dates: start: 201505

REACTIONS (2)
  - Headache [Unknown]
  - Product substitution issue [Unknown]
